FAERS Safety Report 15094369 (Version 1)
Quarter: 2018Q2

REPORT INFORMATION
  Report Type: Spontaneous
  Country: IT (occurrence: IT)
  Receive Date: 20180630
  Receipt Date: 20180630
  Transmission Date: 20180711
  Serious: Yes (Other)
  Sender: FDA-Public Use
  Company Number: IT-AMGEN-ITASP2018086119

PATIENT
  Age: 62 Year
  Sex: Female
  Weight: 64 kg

DRUGS (1)
  1. VECTIBIX [Suspect]
     Active Substance: PANITUMUMAB
     Indication: GASTROINTESTINAL NEOPLASM
     Dosage: 396 MG, CYCLICAL
     Route: 042
     Dates: start: 20180524, end: 20180607

REACTIONS (1)
  - Exophthalmos [Not Recovered/Not Resolved]

NARRATIVE: CASE EVENT DATE: 20180601
